FAERS Safety Report 5472964-9 (Version None)
Quarter: 2007Q4

REPORT INFORMATION
  Report Type: 
  Country: None (occurrence: None)
  Receive Date: 20071001
  Receipt Date: 20070131
  Transmission Date: 20080405
  Serious: No
  Sender: FDA-Public Use
  Company Number: US-ASTRAZENECA-2007UW02166

PATIENT
  Sex: Female

DRUGS (1)
  1. ARIMIDEX [Suspect]
     Route: 048
     Dates: start: 20040815

REACTIONS (4)
  - ARTHRALGIA [None]
  - BREAST ENLARGEMENT [None]
  - ILL-DEFINED DISORDER [None]
  - WEIGHT INCREASED [None]
